FAERS Safety Report 5053360-5 (Version None)
Quarter: 2006Q3

REPORT INFORMATION
  Report Type: 
  Country: None (occurrence: None)
  Receive Date: 20060718
  Receipt Date: 20060613
  Transmission Date: 20061208
  Serious: Yes (Other)
  Sender: FDA-Public Use
  Company Number: PHBS2006JP08946

PATIENT
  Age: 41 Year
  Sex: Female
  Weight: 68 kg

DRUGS (2)
  1. LAMISIL [Suspect]
     Indication: NAIL TINEA
     Dosage: 125 MG/D
     Route: 048
     Dates: start: 20060628
  2. LAMISIL [Suspect]
     Dosage: 125 MG/D
     Route: 048
     Dates: start: 20060513, end: 20060613

REACTIONS (5)
  - HAEMATOCRIT DECREASED [None]
  - HAEMOGLOBIN DECREASED [None]
  - IRON DEFICIENCY ANAEMIA [None]
  - RED BLOOD CELL COUNT DECREASED [None]
  - UTERINE LEIOMYOMA [None]
